FAERS Safety Report 24298149 (Version 1)
Quarter: 2024Q3

REPORT INFORMATION
  Report Type: Spontaneous
  Country: FR (occurrence: FR)
  Receive Date: 20240909
  Receipt Date: 20240909
  Transmission Date: 20241017
  Serious: Yes (Hospitalization)
  Sender: MYLAN
  Company Number: None

PATIENT
  Age: 19 Year
  Sex: Female
  Weight: 71 kg

DRUGS (3)
  1. METHOTREXATE [Suspect]
     Active Substance: METHOTREXATE
     Indication: Desmoid tumour
     Dosage: 46.76 MILLIGRAM, 30.00 MG/M2 -10%, OR 46.76 MG
     Route: 042
     Dates: start: 20230928, end: 20240722
  2. ETHINYL ESTRADIOL\LEVONORGESTREL [Suspect]
     Active Substance: ETHINYL ESTRADIOL\LEVONORGESTREL
     Indication: Contraception
     Dosage: 1 DOSAGE FORM, QD, 1 TAB/DAY
     Route: 048
     Dates: start: 20210101, end: 20240727
  3. VINORELBINE TARTRATE [Suspect]
     Active Substance: VINORELBINE TARTRATE
     Indication: Desmoid tumour
     Dosage: 27.7 MILLIGRAM, 20.00 MG/M2 20.00% REDUCTION OR 27.70 MG
     Route: 042
     Dates: start: 20230928, end: 20240722

REACTIONS (2)
  - Pulmonary infarction [Not Recovered/Not Resolved]
  - Pulmonary embolism [Not Recovered/Not Resolved]

NARRATIVE: CASE EVENT DATE: 20240727
